FAERS Safety Report 5911801-2 (Version None)
Quarter: 2008Q4

REPORT INFORMATION
  Report Type: 
  Country: None (occurrence: None)
  Receive Date: 20081008
  Receipt Date: 20080930
  Transmission Date: 20090506
  Serious: Yes (Hospitalization, Other)
  Sender: FDA-Public Use
  Company Number: BR-BAYER-200818733LA

PATIENT
  Age: 41 Year
  Sex: Female

DRUGS (1)
  1. BETAFERON [Suspect]
     Indication: MULTIPLE SCLEROSIS
     Route: 058
     Dates: start: 20050101, end: 20050101

REACTIONS (4)
  - GINGIVAL BLEEDING [None]
  - INJECTION SITE DISCOLOURATION [None]
  - PLATELET COUNT DECREASED [None]
  - PURPURA [None]
